FAERS Safety Report 4946011-9 (Version None)
Quarter: 2006Q1

REPORT INFORMATION
  Report Type: 
  Country: None (occurrence: None)
  Receive Date: 20060316
  Receipt Date: 20060202
  Transmission Date: 20060701
  Serious: Yes (Hospitalization, Disabling)
  Sender: FDA-Public Use
  Company Number: US-MERCK-0602USA01751

PATIENT
  Age: 61 Year
  Sex: Male
  Weight: 114 kg

DRUGS (2)
  1. VIOXX [Suspect]
     Indication: PAIN IN EXTREMITY
     Route: 048
     Dates: start: 20000101, end: 20020811
  2. VIOXX [Suspect]
     Route: 048
     Dates: start: 20000101, end: 20020811

REACTIONS (7)
  - BACK INJURY [None]
  - HYPERCHOLESTEROLAEMIA [None]
  - MYOCARDIAL INFARCTION [None]
  - NEUROPATHY PERIPHERAL [None]
  - PLANTAR FASCIITIS [None]
  - PSEUDARTHROSIS [None]
  - SPINAL DISORDER [None]
